FAERS Safety Report 4821576-6 (Version None)
Quarter: 2005Q4

REPORT INFORMATION
  Report Type: 
  Country: None (occurrence: None)
  Receive Date: 20051103
  Receipt Date: 20051103
  Transmission Date: 20060501
  Serious: Yes (Other)
  Sender: FDA-Public Use
  Company Number: None

PATIENT
  Age: 82 Year
  Sex: Male
  Weight: 88 kg

DRUGS (1)
  1. ATROVENT [Suspect]
     Indication: CHRONIC OBSTRUCTIVE PULMONARY DISEASE
     Dosage: PO 4 PUFFS Q 6 H
     Route: 055
     Dates: start: 20050705, end: 20050711

REACTIONS (2)
  - CHEST PAIN [None]
  - SIMILAR REACTION ON PREVIOUS EXPOSURE TO DRUG [None]
